FAERS Safety Report 5583068-9 (Version None)
Quarter: 2008Q1

REPORT INFORMATION
  Report Type: 
  Country: None (occurrence: None)
  Receive Date: 20080107
  Receipt Date: 20071228
  Transmission Date: 20080703
  Serious: Yes (Hospitalization)
  Sender: FDA-Public Use
  Company Number: B0501092A

PATIENT
  Age: 49 Year
  Sex: Female

DRUGS (5)
  1. ZOPHREN [Suspect]
     Dosage: 8MG SINGLE DOSE
     Route: 042
     Dates: start: 20071001, end: 20071001
  2. DOXORUBICIN HCL [Suspect]
     Indication: BREAST CANCER
     Dosage: 100MG SINGLE DOSE
     Route: 042
     Dates: start: 20071001, end: 20071001
  3. CARDIOXANE [Suspect]
     Indication: DRUG TOXICITY PROPHYLAXIS
     Dosage: 2000MG SINGLE DOSE
     Route: 042
     Dates: start: 20071001, end: 20071001
  4. TRANXENE [Suspect]
     Dosage: 20MG PER DAY
     Route: 042
     Dates: start: 20071001, end: 20071001
  5. METHYLPREDNISOLONE [Concomitant]
     Dosage: 60MG SINGLE DOSE
     Route: 042
     Dates: start: 20071001, end: 20071001

REACTIONS (12)
  - ANAPHYLACTIC REACTION [None]
  - BLOOD PRESSURE DECREASED [None]
  - EYELID OEDEMA [None]
  - FACE OEDEMA [None]
  - HEART RATE INCREASED [None]
  - HYPERTENSIVE CRISIS [None]
  - MALAISE [None]
  - NASAL OEDEMA [None]
  - PAINFUL RESPIRATION [None]
  - PRURITUS GENERALISED [None]
  - RASH MACULO-PAPULAR [None]
  - THROAT IRRITATION [None]
